FAERS Safety Report 13948529 (Version 1)
Quarter: 2017Q3

REPORT INFORMATION
  Report Type: Spontaneous
  Country: DK (occurrence: DK)
  Receive Date: 20170908
  Receipt Date: 20170908
  Transmission Date: 20171128
  Serious: Yes (Hospitalization)
  Sender: FDA-Public Use
  Company Number: DK-BAYER-2017-168439

PATIENT
  Age: 26 Year
  Sex: Female

DRUGS (1)
  1. MIRENA [Suspect]
     Active Substance: LEVONORGESTREL
     Indication: CONTRACEPTION
     Route: 015
     Dates: end: 20170124

REACTIONS (5)
  - Abdominal pain [Unknown]
  - Dyschezia [Unknown]
  - Complication associated with device [Recovered/Resolved]
  - Device dislocation [None]
  - Flatulence [Unknown]

NARRATIVE: CASE EVENT DATE: 2017
